FAERS Safety Report 21489511 (Version 1)
Quarter: 2022Q4

REPORT INFORMATION
  Report Type: Report from Study
  Country: CA (occurrence: CA)
  Receive Date: 20221021
  Receipt Date: 20221021
  Transmission Date: 20230112
  Serious: Yes (Other)
  Sender: FDA-Public Use
  Company Number: CA-CELLTRION INC.-2022CA017027

PATIENT

DRUGS (1)
  1. TRUXIMA [Suspect]
     Active Substance: RITUXIMAB-ABBS
     Indication: Coombs positive haemolytic anaemia
     Dosage: 790 MG WEEKLY X 4 WEEKS (375MG/M2) (TOTAL QUANTITY REQUESTED: 3200MG)
     Route: 042

REACTIONS (3)
  - Coombs positive haemolytic anaemia [Unknown]
  - Off label use [Unknown]
  - Inability to afford medication [Unknown]
